FAERS Safety Report 7460852-8 (Version None)
Quarter: 2011Q2

REPORT INFORMATION
  Report Type: 
  Country: None (occurrence: None)
  Receive Date: 20110505
  Receipt Date: 20110425
  Transmission Date: 20111010
  Serious: Yes (Death)
  Sender: FDA-Public Use
  Company Number: NL-TEVA-278257ISR

PATIENT
  Age: 53 Year
  Sex: Female

DRUGS (1)
  1. GEMCITABINE [Suspect]
     Dosage: 1250 MG/M2;

REACTIONS (1)
  - THROMBOTIC MICROANGIOPATHY [None]
